FAERS Safety Report 6920957-4 (Version None)
Quarter: 2010Q3

REPORT INFORMATION
  Report Type: 
  Country: None (occurrence: None)
  Receive Date: 20100812
  Receipt Date: 20100802
  Transmission Date: 20110219
  Serious: Yes (Other)
  Sender: FDA-Public Use
  Company Number: FR-JNJFOC-20100800457

PATIENT
  Age: 46 Year
  Sex: Female

DRUGS (3)
  1. REMICADE [Suspect]
     Indication: RHEUMATOID ARTHRITIS
     Dosage: 10TH INFUSION
     Route: 042
  2. REMICADE [Suspect]
     Route: 042
  3. CORTANCYL [Concomitant]
     Indication: RHEUMATOID ARTHRITIS
     Route: 048

REACTIONS (5)
  - ANAPHYLACTOID REACTION [None]
  - HYPERTENSION [None]
  - INFUSION RELATED REACTION [None]
  - RASH ERYTHEMATOUS [None]
  - TACHYCARDIA [None]
